FAERS Safety Report 5803610-X (Version None)
Quarter: 2008Q3

REPORT INFORMATION
  Report Type: 
  Country: None (occurrence: None)
  Receive Date: 20080703
  Receipt Date: 20080613
  Transmission Date: 20090109
  Serious: Yes (Other)
  Sender: FDA-Public Use
  Company Number: WAES 0806ESP00026

PATIENT

DRUGS (2)
  1. INJ INVANZ (ERTAPENEN SODIUM) [Suspect]
     Indication: ABDOMINAL INFECTION
     Dosage: 1 GM/DAILY IV
     Route: 042
  2. INJ INVANZ (ERTAPENEN SODIUM) [Suspect]
     Indication: SEPTIC SHOCK
     Dosage: 1 GM/DAILY IV
     Route: 042

REACTIONS (4)
  - ABDOMINAL ABSCESS [None]
  - NO THERAPEUTIC RESPONSE [None]
  - POSTOPERATIVE ABSCESS [None]
  - TREATMENT FAILURE [None]
